FAERS Safety Report 7550898-3 (Version None)
Quarter: 2011Q2

REPORT INFORMATION
  Report Type: 
  Country: None (occurrence: None)
  Receive Date: 20110609
  Receipt Date: 20110606
  Transmission Date: 20111010
  Serious: Yes (Hospitalization)
  Sender: FDA-Public Use
  Company Number: SP03735

PATIENT
  Age: 57 Year
  Sex: Female
  Weight: 81.6475 kg

DRUGS (6)
  1. LACTULOSE [Concomitant]
  2. SPIRONOLACTONE [Concomitant]
  3. DIOVAN [Concomitant]
  4. LASIX [Concomitant]
  5. ANTACID [Concomitant]
  6. XIFAXAN [Suspect]
     Indication: HEPATIC ENCEPHALOPATHY
     Dosage: (550 MG,SEE TEXT),ORAL
     Route: 048
     Dates: start: 20110101

REACTIONS (6)
  - HEPATIC ENCEPHALOPATHY [None]
  - BLOOD POTASSIUM INCREASED [None]
  - HEADACHE [None]
  - ASCITES [None]
  - DYSGEUSIA [None]
  - NAUSEA [None]
